FAERS Safety Report 6667537-6 (Version None)
Quarter: 2010Q2

REPORT INFORMATION
  Report Type: 
  Country: None (occurrence: None)
  Receive Date: 20100405
  Receipt Date: 20100401
  Transmission Date: 20101027
  Serious: Yes (Death)
  Sender: FDA-Public Use
  Company Number: US-ROCHE-694898

PATIENT
  Sex: Female
  Weight: 75.3 kg

DRUGS (1)
  1. CAPECITABINE [Suspect]
     Indication: BREAST CANCER
     Dosage: 1000 MG MORNING / 1500 MG EVENING
     Route: 048
     Dates: start: 20090219, end: 20100401

REACTIONS (1)
  - DEATH [None]
